FAERS Safety Report 13283774 (Version 8)
Quarter: 2018Q3

REPORT INFORMATION
  Report Type: Spontaneous
  Country: US (occurrence: US)
  Receive Date: 20170301
  Receipt Date: 20180829
  Transmission Date: 20181010
  Serious: Yes (Other)
  Sender: FDA-Public Use
  Company Number: US-MALLINCKRODT-T201700827

PATIENT
  Age: 26 Year
  Sex: Female

DRUGS (10)
  1. H.P. ACTHAR [Suspect]
     Active Substance: CORTICOTROPIN
     Indication: SYSTEMIC LUPUS ERYTHEMATOSUS
     Dosage: 80 UNITS, TWICE A WEEK
     Route: 058
     Dates: start: 20161009, end: 201611
  2. H.P. ACTHAR [Suspect]
     Active Substance: CORTICOTROPIN
     Dosage: 80 UNITS/1 ML, 2 TIMES PER WEEK SUNDAY/WEDNESDAY
     Route: 058
     Dates: start: 2018, end: 2018
  3. H.P. ACTHAR [Suspect]
     Active Substance: CORTICOTROPIN
     Dosage: 80 UNITS/1 ML, 2 TIMES PER WEEK SUNDAY/WEDNESDAY
     Route: 058
     Dates: end: 20171129
  4. PREDNISONE. [Concomitant]
     Active Substance: PREDNISONE
     Indication: PRODUCT USED FOR UNKNOWN INDICATION
     Dosage: UNK
     Route: 065
  5. H.P. ACTHAR [Suspect]
     Active Substance: CORTICOTROPIN
     Dosage: 80 UNITS/1 ML, 2 TIMES WEEK, MONDAY/THURSDAY
     Route: 058
     Dates: start: 201808, end: 201808
  6. H.P. ACTHAR [Suspect]
     Active Substance: CORTICOTROPIN
     Dosage: 80 UNITS/1 ML, 2 TIMES PER WEEK FRIDAY/TUESDAY
     Route: 058
     Dates: start: 2018, end: 2018
  7. H.P. ACTHAR [Suspect]
     Active Substance: CORTICOTROPIN
     Dosage: 40 UNITS/.5 ML, 2 TIMES PER WEEK FRIDAY/TUESDAY
     Route: 058
     Dates: start: 2018
  8. H.P. ACTHAR [Suspect]
     Active Substance: CORTICOTROPIN
     Dosage: 80 UNITS/1 ML, 2 TIMES PER WEEK  FRIDAY/TUESDAY
     Route: 058
     Dates: end: 20180717
  9. H.P. ACTHAR [Suspect]
     Active Substance: CORTICOTROPIN
     Dosage: UNK
     Route: 065
  10. H.P. ACTHAR [Suspect]
     Active Substance: CORTICOTROPIN
     Dosage: 80 UNITS/1 ML, 2 TIMES PER WEEK MONDAY/WEDNESDAY
     Route: 058
     Dates: start: 201808

REACTIONS (12)
  - Injection site erythema [Not Recovered/Not Resolved]
  - Cataract [Unknown]
  - Drug dose omission [Not Recovered/Not Resolved]
  - Injection site swelling [Recovering/Resolving]
  - Expired product administered [Unknown]
  - Gangrene [Unknown]
  - Systemic lupus erythematosus [Not Recovered/Not Resolved]
  - Pain [Unknown]
  - Raynaud^s phenomenon [Unknown]
  - Injection site pain [Recovering/Resolving]
  - Injection site pruritus [Recovering/Resolving]
  - Malaise [Unknown]

NARRATIVE: CASE EVENT DATE: 20170130
